FAERS Safety Report 24464514 (Version 1)
Quarter: 2024Q4

REPORT INFORMATION
  Report Type: Spontaneous
  Country: US (occurrence: US)
  Receive Date: 20241018
  Receipt Date: 20241018
  Transmission Date: 20250115
  Serious: No
  Sender: ROCHE
  Company Number: US-ROCHE-3496828

PATIENT
  Sex: Female

DRUGS (10)
  1. XOLAIR [Suspect]
     Active Substance: OMALIZUMAB
     Indication: Asthma
     Route: 058
     Dates: start: 201809
  2. XOLAIR [Suspect]
     Active Substance: OMALIZUMAB
     Indication: Asthma
     Route: 058
     Dates: start: 20231226
  3. ALBUTEROL SULFATE [Concomitant]
     Active Substance: ALBUTEROL SULFATE
     Indication: Asthma
     Dosage: 19 MCG?INHALE 2 PUFFS INTO LUNGS EVERY 6 HOURS AS NEEDED
  4. HYDROCHLOROTHIAZIDE [Concomitant]
     Active Substance: HYDROCHLOROTHIAZIDE
     Dosage: 25MG 1 TAB
  5. IPRATROPIUM [Concomitant]
     Active Substance: IPRATROPIUM
     Dosage: INHALE 3ML VIA NEBULIZER 4 TIMES DAILY AS NEEDED
  6. MONTELUKAST [Concomitant]
     Active Substance: MONTELUKAST
     Dosage: 10MG TAB ONE TAB DAILY BY MOUTH AT BEDTIME
     Route: 048
  7. RAMIPRIL [Concomitant]
     Active Substance: RAMIPRIL
     Dosage: 5MG CAPSULE 1 CAPSULE DAILY
  8. ROSUVASTATIN [Concomitant]
     Active Substance: ROSUVASTATIN
     Dosage: 10MG TAB 1 TAB DAILY
  9. SERTRALINE [Concomitant]
     Active Substance: SERTRALINE HYDROCHLORIDE
     Dosage: 100MG TAB 1 TAB DAILY
  10. ALBUTEROL [Concomitant]
     Active Substance: ALBUTEROL
     Dosage: INHALE 3ML VIA NEBULIZER 4 TIMES DAILY AS NEEDED

REACTIONS (6)
  - Malaise [Recovered/Resolved]
  - Illness [Recovered/Resolved]
  - Productive cough [Recovered/Resolved]
  - Oropharyngeal pain [Recovered/Resolved]
  - Wheezing [Recovered/Resolved]
  - Rhinorrhoea [Recovered/Resolved]
